FAERS Safety Report 5521862-0 (Version None)
Quarter: 2007Q4

REPORT INFORMATION
  Report Type: 
  Country: None (occurrence: None)
  Receive Date: 20071120
  Receipt Date: 20071114
  Transmission Date: 20080405
  Serious: Yes (Hospitalization, Disabling)
  Sender: FDA-Public Use
  Company Number: US-GENENTECH-251306

PATIENT
  Sex: Female
  Weight: 64.399 kg

DRUGS (4)
  1. BEVACIZUMAB [Suspect]
     Indication: COLON CANCER
     Dosage: 10 MG/KG, Q2W
     Route: 042
     Dates: start: 20070809
  2. CPT-11 [Suspect]
     Indication: COLON CANCER
     Dosage: UNK, 1/WEEK
     Route: 042
     Dates: start: 20070809
  3. LEUCOVORIN CALCIUM [Suspect]
     Indication: COLON CANCER
     Dosage: UNK, 1/WEEK
     Route: 042
     Dates: start: 20070809
  4. FLUOROURACIL [Suspect]
     Indication: COLON CANCER
     Dosage: UNK, 1/WEEK
     Route: 042
     Dates: start: 20070809

REACTIONS (5)
  - BLOOD POTASSIUM DECREASED [None]
  - CARDIAC FAILURE CONGESTIVE [None]
  - CARDIOMYOPATHY [None]
  - SUPRAVENTRICULAR EXTRASYSTOLES [None]
  - VENTRICULAR EXTRASYSTOLES [None]
